FAERS Safety Report 12949924 (Version 2)
Quarter: 2016Q4

REPORT INFORMATION
  Report Type: Other
  Country: US (occurrence: US)
  Receive Date: 20161117
  Receipt Date: 20161206
  Transmission Date: 20170207
  Serious: Yes (Hospitalization)
  Sender: FDA-Public Use
  Company Number: US-ACORDA-ACO_130254_2016

PATIENT
  Age: 72 Year
  Sex: Female

DRUGS (4)
  1. AMPYRA [Suspect]
     Active Substance: DALFAMPRIDINE
     Dosage: 10MG , QD
     Route: 048
     Dates: end: 201608
  2. AMPYRA [Suspect]
     Active Substance: DALFAMPRIDINE
     Dosage: 10MG, QD
     Route: 048
     Dates: start: 201608, end: 201609
  3. AMPYRA [Suspect]
     Active Substance: DALFAMPRIDINE
     Indication: MULTIPLE SCLEROSIS
     Dosage: 10MG, QD
     Route: 048
     Dates: end: 201606
  4. AMPYRA [Suspect]
     Active Substance: DALFAMPRIDINE
     Dosage: 10MG , QD
     Route: 048

REACTIONS (3)
  - Staphylococcal skin infection [Recovered/Resolved]
  - Therapy cessation [Recovered/Resolved]
  - Staphylococcal skin infection [Recovered/Resolved]

NARRATIVE: CASE EVENT DATE: 201606
